FAERS Safety Report 9407699 (Version 1)
Quarter: 2013Q3

REPORT INFORMATION
  Report Type: Spontaneous
  Country: US (occurrence: US)
  Receive Date: 20130718
  Receipt Date: 20130718
  Transmission Date: 20140515
  Serious: No
  Sender: FDA-Public Use
  Company Number: US-PFIZER INC-2013210255

PATIENT
  Age: 36 Year
  Sex: Female
  Weight: 115.65 kg

DRUGS (4)
  1. ZOLOFT [Suspect]
     Indication: DEPRESSION
     Dosage: 50 MG, 1X/DAY
     Route: 048
     Dates: start: 201304, end: 201305
  2. ZOLOFT [Suspect]
     Indication: ANXIETY
     Dosage: 100 MG (BY TAKING TWO TABLETS OF 50MG), 1X/DAY
     Route: 048
     Dates: start: 201305, end: 201306
  3. NEURONTIN [Concomitant]
     Dosage: 300 MG, UNK
  4. ULTRAM [Concomitant]
     Dosage: 50 MG, UNK

REACTIONS (3)
  - Anxiety [Not Recovered/Not Resolved]
  - Depression [Not Recovered/Not Resolved]
  - Tremor [Not Recovered/Not Resolved]
